FAERS Safety Report 9844132 (Version 4)
Quarter: 2014Q2

REPORT INFORMATION
  Report Type: Spontaneous
  Country: US (occurrence: US)
  Receive Date: 20140127
  Receipt Date: 20140626
  Transmission Date: 20141212
  Serious: Yes (Hospitalization)
  Sender: FDA-Public Use
  Company Number: US-BIOGENIDEC-2014BI005184

PATIENT
  Sex: Female
  Weight: 77 kg

DRUGS (14)
  1. TYSABRI [Suspect]
     Indication: MULTIPLE SCLEROSIS
     Route: 042
     Dates: start: 20101222
  2. AVONEX [Concomitant]
     Indication: MULTIPLE SCLEROSIS
     Route: 030
     Dates: start: 20051021
  3. ROPINIROLE [Concomitant]
     Route: 048
  4. ROPINIROLE [Concomitant]
     Route: 048
  5. DOCUSATE [Concomitant]
  6. ROSUVASTATIN [Concomitant]
     Route: 048
  7. ESTRADIOL [Concomitant]
     Route: 048
  8. ASPIRIN [Concomitant]
     Route: 048
  9. CITALOPRAM [Concomitant]
     Route: 048
  10. HYDROCODONE/ACETAMINOPHEN [Concomitant]
     Route: 048
  11. ENALAPRIL/HYDROCHLOROTHIAZIDE [Concomitant]
     Route: 048
  12. VITAMIN D3 [Concomitant]
     Route: 048
  13. MELATONIN [Concomitant]
     Route: 048
  14. CINNAMON BARK [Concomitant]
     Route: 048

REACTIONS (2)
  - Incisional hernia [Recovered/Resolved]
  - Cardiovascular disorder [Recovered/Resolved]
